FAERS Safety Report 7800782-2 (Version None)
Quarter: 2011Q4

REPORT INFORMATION
  Report Type: 
  Country: None (occurrence: None)
  Receive Date: 20111006
  Receipt Date: 20111004
  Transmission Date: 20120403
  Serious: Yes (Life-Threatening, Hospitalization, Other)
  Sender: FDA-Public Use
  Company Number: JP-B.I. PHARMACEUTICALS,INC./RIDGEFIELD-2011-BP-20971NB

PATIENT
  Sex: Female
  Weight: 77 kg

DRUGS (8)
  1. DISOPYRAMIDE [Concomitant]
     Indication: ARRHYTHMIA
     Dosage: 300 MG
     Route: 048
     Dates: start: 20110607
  2. PRADAXA [Suspect]
     Indication: ATRIAL FIBRILLATION
     Dosage: 220 MG
     Route: 048
     Dates: start: 20110607, end: 20110805
  3. CANDESARTAN CILEXETIL [Concomitant]
     Indication: HYPERTENSION
     Dosage: 8 MG
     Route: 048
     Dates: start: 20110607
  4. NOVOLIN R [Concomitant]
     Indication: DIABETES MELLITUS
     Dosage: 8 U
     Route: 058
     Dates: start: 20110607
  5. INDAPAMIDE [Concomitant]
     Indication: CARDIAC FAILURE CHRONIC
     Dosage: 1 MG
     Route: 048
     Dates: start: 20110607
  6. LIPITOR [Concomitant]
     Indication: HYPERLIPIDAEMIA
     Dosage: 10 MG
     Route: 048
     Dates: start: 20110607
  7. NITRODERM [Concomitant]
     Indication: ANGINA PECTORIS
     Dosage: 25 MG
     Route: 065
     Dates: start: 20110607
  8. PRADAXA [Suspect]
     Dosage: 220 MG
     Route: 048
     Dates: start: 20110822

REACTIONS (2)
  - INTERNATIONAL NORMALISED RATIO INCREASED [None]
  - CHOLECYSTITIS ACUTE [None]
